FAERS Safety Report 5473939-6 (Version None)
Quarter: 2007Q3

REPORT INFORMATION
  Report Type: 
  Country: None (occurrence: None)
  Receive Date: 20070831
  Receipt Date: 20070607
  Transmission Date: 20080115
  Serious: No
  Sender: FDA-Public Use
  Company Number: 242582

PATIENT
  Age: 72 Year
  Sex: Female
  Weight: 83.9 kg

DRUGS (3)
  1. LUCENTIS [Suspect]
     Indication: MACULAR DEGENERATION
     Dosage: 1/MONTH
  2. CHOLESTEROL LOWERING DRUG NOS (CHOLESTEROL LOWERING DRUG NOS) [Concomitant]
  3. VITAMIN SUPPLEMENTS (UNK INGREDIENTS) (VITAMINS NOS) [Concomitant]

REACTIONS (1)
  - DRUG INEFFECTIVE [None]
